FAERS Safety Report 4298505-X (Version None)
Quarter: 2004Q1

REPORT INFORMATION
  Report Type: 
  Country: None (occurrence: None)
  Receive Date: 20040126
  Receipt Date: 20031023
  Transmission Date: 20041129
  Serious: No
  Sender: FDA-Public Use
  Company Number: USA031050700

PATIENT
  Age: 9 Year
  Sex: Male
  Weight: 41 kg

DRUGS (4)
  1. STRATTERA [Suspect]
     Indication: ATTENTION DEFICIT/HYPERACTIVITY DISORDER
     Dosage: 40 MG/DAY
     Dates: start: 20030501
  2. CONCERTA [Concomitant]
  3. ZOLOFT [Concomitant]
  4. CLONIDINE [Concomitant]

REACTIONS (3)
  - HEADACHE [None]
  - MYDRIASIS [None]
  - PRESCRIBED OVERDOSE [None]
